FAERS Safety Report 8921759 (Version 1)
Quarter: 2012Q4

REPORT INFORMATION
  Report Type: 
  Country: US (occurrence: US)
  Receive Date: 20121121
  Receipt Date: 20121121
  Transmission Date: 20130627
  Serious: No
  Sender: FDA-Public Use
  Company Number: US-009507513-1211USA008584

PATIENT
  Age: 2 Year
  Sex: Female
  Weight: 14.06 kg

DRUGS (1)
  1. CLARITIN CHEWABLE TABLETS [Suspect]
     Indication: PRODUCT USED FOR UNKNOWN INDICATION
     Dosage: 5 mg, Once
     Route: 048
     Dates: start: 20120919

REACTIONS (1)
  - Urticaria [Not Recovered/Not Resolved]
